FAERS Safety Report 4477501-3 (Version None)
Quarter: 2004Q4

REPORT INFORMATION
  Report Type: 
  Country: None (occurrence: None)
  Receive Date: 20041013
  Receipt Date: 20040924
  Transmission Date: 20050328
  Serious: Yes (Hospitalization)
  Sender: FDA-Public Use
  Company Number: JP_040703979

PATIENT
  Age: 61 Year
  Sex: Female

DRUGS (14)
  1. HUMALOG [Suspect]
     Indication: DIABETES MELLITUS NON-INSULIN-DEPENDENT
     Dosage: 18 U DAY
     Dates: start: 20031126
  2. PENFILL 30R(INSULIN) [Concomitant]
  3. METFORMIN HCL [Concomitant]
  4. ISOSORBIDE MONONITRATE [Concomitant]
  5. PLETAL [Concomitant]
  6. ASPIRIN [Concomitant]
  7. SIGMART(NICORANDIL) [Concomitant]
  8. MUCOSTA(REBAMIPIDE) [Concomitant]
  9. LOCHOL(FLUVASTATIN SODIUM) [Concomitant]
  10. CARVEDILOL [Concomitant]
  11. LENDORM [Concomitant]
  12. GLUCOBAY [Concomitant]
  13. PIRENOXINE [Concomitant]
  14. DIOVAN [Concomitant]

REACTIONS (8)
  - CONDITION AGGRAVATED [None]
  - DIABETES MELLITUS INADEQUATE CONTROL [None]
  - FALL [None]
  - FOOT FRACTURE [None]
  - GLYCOSYLATED HAEMOGLOBIN INCREASED [None]
  - HYPERTENSION [None]
  - HYPOGLYCAEMIA [None]
  - JOINT SPRAIN [None]
